FAERS Safety Report 18002514 (Version 1)
Quarter: 2020Q3

REPORT INFORMATION
  Report Type: Spontaneous
  Country: GB (occurrence: GB)
  Receive Date: 20200709
  Receipt Date: 20200709
  Transmission Date: 20201103
  Serious: Yes (Disabling, Other)
  Sender: FDA-Public Use
  Company Number: GB-GLAXOSMITHKLINE-GB2020123781

PATIENT
  Age: 73 Year
  Sex: Female
  Weight: 38.09 kg

DRUGS (1)
  1. INCRUSE ELLIPTA [Suspect]
     Active Substance: UMECLIDINIUM BROMIDE
     Indication: CHRONIC OBSTRUCTIVE PULMONARY DISEASE
     Dosage: 55 ?G UNK (30DS)
     Route: 055
     Dates: start: 20200618, end: 20200624

REACTIONS (3)
  - Nausea [Recovered/Resolved with Sequelae]
  - Constipation [Recovered/Resolved with Sequelae]
  - Migraine [Recovered/Resolved with Sequelae]

NARRATIVE: CASE EVENT DATE: 20200618
